FAERS Safety Report 10036149 (Version 4)
Quarter: 2014Q2

REPORT INFORMATION
  Report Type: Report from Study
  Country: RO (occurrence: RO)
  Receive Date: 20140325
  Receipt Date: 20140530
  Transmission Date: 20141212
  Serious: Yes (Hospitalization)
  Sender: FDA-Public Use
  Company Number: RO-OTSUKA-US-2013-12252

PATIENT
  Age: 31 Year
  Sex: Male

DRUGS (2)
  1. OPC-14597 [Suspect]
     Indication: BIPOLAR I DISORDER
     Dosage: UNK
     Route: 065
     Dates: start: 20130820, end: 20131107
  2. OPC-14597 [Suspect]
     Dosage: 400 MG MILLIGRAM(S), UNK
     Route: 030
     Dates: start: 20131108, end: 20131121

REACTIONS (1)
  - Mania [Recovered/Resolved]
